FAERS Safety Report 21709132 (Version 1)
Quarter: 2022Q4

REPORT INFORMATION
  Report Type: Spontaneous
  Country: FR (occurrence: FR)
  Receive Date: 20221210
  Receipt Date: 20221210
  Transmission Date: 20230113
  Serious: Yes (Other)
  Sender: FDA-Public Use
  Company Number: None

PATIENT
  Age: 54 Year
  Sex: Male

DRUGS (8)
  1. MITOMYCIN [Suspect]
     Active Substance: MITOMYCIN
     Indication: Transitional cell carcinoma
     Dates: start: 202203, end: 202206
  2. ALLOPURINOL [Suspect]
     Active Substance: ALLOPURINOL
     Indication: Gouty arthritis
     Dosage: 200 MG PER DAY - LONG-TERM TREATMENT
  3. PANTOPRAZOLE [Suspect]
     Active Substance: PANTOPRAZOLE
     Indication: Product used for unknown indication
     Dosage: 20 MG PER DAY - LONG-TERM TREATMENT
  4. NEORAL [Suspect]
     Active Substance: CYCLOSPORINE
     Indication: Prophylaxis against transplant rejection
     Dosage: 90 MG IN THE MORNING AND 75 MG IN THE EVENING - LONG-TERM TREATMENT
  5. VALGANCICLOVIR HYDROCHLORIDE [Suspect]
     Active Substance: VALGANCICLOVIR HYDROCHLORIDE
     Indication: Prophylaxis
     Dosage: STRENGTH: 450 MG, 450 MG PER DAY - LONG-TERM TREATMENT
  6. TOZINAMERAN [Suspect]
     Active Substance: TOZINAMERAN
     Indication: COVID-19 immunisation
     Dosage: DISPERSION TO BE DILUTED FOR INJECTION, COVID-19 MRNA?VACCINE (NUCLEOSIDE MODIFIED), R1
     Dates: start: 202104, end: 202104
  7. FILGRASTIM [Suspect]
     Active Substance: FILGRASTIM
     Indication: Transitional cell carcinoma
     Dosage: STRENGTH: 48 MU/0.5 ML, SOLUTION FOR INJECTION OR INFUSION IN PRE-FILLED SYRINGE
  8. Cilgavimab, Tixagevimab [Concomitant]
     Indication: COVID-19
     Dates: start: 20220530, end: 20220530

REACTIONS (1)
  - Neuropathy peripheral [Recovering/Resolving]

NARRATIVE: CASE EVENT DATE: 20220401
